FAERS Safety Report 14110508 (Version 1)
Quarter: 2017Q4

REPORT INFORMATION
  Report Type: Spontaneous
  Country: US (occurrence: US)
  Receive Date: 20171019
  Receipt Date: 20171019
  Transmission Date: 20180321
  Serious: No
  Sender: FDA-Public Use
  Company Number: None

PATIENT
  Age: 29 Year
  Sex: Female
  Weight: 90 kg

DRUGS (2)
  1. BUPROPRION XL 300MG [Suspect]
     Active Substance: BUPROPION
     Indication: DEPRESSION
     Dates: start: 20170322, end: 20171014
  2. BUPROPRION XL 300MG [Suspect]
     Active Substance: BUPROPION
     Indication: ANXIETY
     Dates: start: 20170322, end: 20171014

REACTIONS (3)
  - Product quality issue [None]
  - Weight increased [None]
  - Drug ineffective [None]

NARRATIVE: CASE EVENT DATE: 20170322
